FAERS Safety Report 4462649-X (Version None)
Quarter: 2004Q3

REPORT INFORMATION
  Report Type: 
  Country: None (occurrence: None)
  Receive Date: 20040929
  Receipt Date: 20040910
  Transmission Date: 20050211
  Serious: Yes (Hospitalization)
  Sender: FDA-Public Use
  Company Number: DSA_70400_2004

PATIENT
  Age: 26 Year
  Sex: Male
  Weight: 113.3993 kg

DRUGS (7)
  1. AZASAN [Suspect]
     Indication: COLITIS ULCERATIVE
     Dosage: 100 MG QDAY PO
     Route: 048
     Dates: start: 20040401, end: 20040601
  2. NORVASC [Concomitant]
  3. TOPROL-XL [Concomitant]
  4. COLAZAL [Concomitant]
  5. METFORMIN [Concomitant]
  6. AVANDIA [Concomitant]
  7. MULTI-VITAMIN [Concomitant]

REACTIONS (4)
  - ARTHRALGIA [None]
  - HEADACHE [None]
  - MUSCLE SPASMS [None]
  - PYREXIA [None]
